FAERS Safety Report 21053045 (Version 2)
Quarter: 2022Q3

REPORT INFORMATION
  Report Type: Spontaneous
  Country: US (occurrence: US)
  Receive Date: 20220707
  Receipt Date: 20220831
  Transmission Date: 20221027
  Serious: No
  Sender: FDA-Public Use
  Company Number: US-BEH-2022147199

PATIENT
  Sex: Female

DRUGS (3)
  1. HIZENTRA [Suspect]
     Active Substance: HUMAN IMMUNOGLOBULIN G
     Indication: Immunodeficiency common variable
     Dosage: 20 GRAM, QW
     Route: 058
     Dates: start: 20220105
  2. HIZENTRA [Suspect]
     Active Substance: HUMAN IMMUNOGLOBULIN G
     Dosage: 20 GRAM, QW
     Route: 058
     Dates: start: 20220106
  3. PREDNISONE [Concomitant]
     Active Substance: PREDNISONE

REACTIONS (10)
  - Pruritus [Unknown]
  - Swelling [Unknown]
  - Infection [Unknown]
  - Dyspnoea [Unknown]
  - Infusion site swelling [Unknown]
  - Swelling [Unknown]
  - Infusion site extravasation [Unknown]
  - Infusion site pruritus [Unknown]
  - Anxiety [Unknown]
  - Irritability [Unknown]
